FAERS Safety Report 6122461-2 (Version None)
Quarter: 2009Q1

REPORT INFORMATION
  Report Type: 
  Country: None (occurrence: None)
  Receive Date: 20090318
  Receipt Date: 20081229
  Transmission Date: 20090719
  Serious: No
  Sender: FDA-Public Use
  Company Number: US-ASTRAZENECA-2008UW28820

PATIENT
  Age: 75 Year
  Sex: Female
  Weight: 65.8 kg

DRUGS (6)
  1. SYMBICORT [Suspect]
     Indication: CHRONIC OBSTRUCTIVE PULMONARY DISEASE
     Dosage: 160/4.5 MG, 2 PUFFS TWICE DAILY
     Route: 055
     Dates: start: 20080601, end: 20081001
  2. SYMBICORT [Suspect]
     Dosage: 160/4.5 MG, 2 PUFFS ONCE DAILY
     Route: 055
     Dates: start: 20081001
  3. ALBUTEROL [Concomitant]
  4. TENORMIN [Concomitant]
  5. ATIVAN [Concomitant]
  6. DIFLUCAN [Concomitant]

REACTIONS (7)
  - ARTHRALGIA [None]
  - ASTHENIA [None]
  - CHEST PAIN [None]
  - FATIGUE [None]
  - HEADACHE [None]
  - NEUROPATHY PERIPHERAL [None]
  - PARAESTHESIA [None]
